FAERS Safety Report 5080389-3 (Version None)
Quarter: 2006Q3

REPORT INFORMATION
  Report Type: 
  Country: None (occurrence: None)
  Receive Date: 20060815
  Receipt Date: 20060811
  Transmission Date: 20061208
  Serious: Yes (Other)
  Sender: FDA-Public Use
  Company Number: PHBS2006ES12061

PATIENT
  Age: 44 Year
  Sex: Male

DRUGS (2)
  1. DIGARIL [Suspect]
     Indication: HYPERCHOLESTEROLAEMIA
     Dosage: 40 MG/DAY
     Route: 048
     Dates: start: 20001001
  2. PRITOR [Suspect]
     Indication: ESSENTIAL HYPERTENSION
     Dosage: 80 MG/DAY
     Route: 048
     Dates: start: 20020601

REACTIONS (1)
  - ERECTILE DYSFUNCTION [None]
